FAERS Safety Report 12483890 (Version 1)
Quarter: 2016Q2

REPORT INFORMATION
  Report Type: Spontaneous
  Country: None (occurrence: None)
  Receive Date: 20160620
  Receipt Date: 20160620
  Transmission Date: 20160815
  Serious: No
  Sender: FDA-Public Use
  Company Number: None

PATIENT
  Sex: Female
  Weight: 67.13 kg

DRUGS (1)
  1. GLEEVEC [Suspect]
     Active Substance: IMATINIB MESYLATE
     Indication: MALIGNANT CONNECTIVE TISSUE NEOPLASM
     Dosage: 400 MG 1 TAB DAILY PO
     Route: 048
     Dates: start: 20160309

REACTIONS (2)
  - Swelling face [None]
  - Paraesthesia [None]
